FAERS Safety Report 10689139 (Version 1)
Quarter: 2015Q1

REPORT INFORMATION
  Report Type: Spontaneous
  Country: FR (occurrence: FR)
  Receive Date: 20150105
  Receipt Date: 20150105
  Transmission Date: 20150720
  Serious: Yes (Other)
  Sender: FDA-Public Use
  Company Number: FR-AMGEN-FRASP2014102481

PATIENT
  Age: 23 Year
  Sex: Female

DRUGS (2)
  1. CIMZIA [Suspect]
     Active Substance: CERTOLIZUMAB PEGOL
     Indication: ANKYLOSING SPONDYLITIS
     Dosage: 1 DF, Q2WK
     Route: 058
     Dates: start: 20141101, end: 20141108
  2. ENBREL [Suspect]
     Active Substance: ETANERCEPT
     Indication: ANKYLOSING SPONDYLITIS
     Dosage: 50 MG, WEEKLY
     Route: 058
     Dates: start: 201409, end: 201410

REACTIONS (4)
  - Erythema [Recovering/Resolving]
  - Injection site reaction [Recovered/Resolved]
  - Injection site erythema [Recovering/Resolving]
  - Injection site plaque [Recovering/Resolving]

NARRATIVE: CASE EVENT DATE: 201410
